FAERS Safety Report 9149067 (Version 2)
Quarter: 2013Q1

REPORT INFORMATION
  Report Type: Spontaneous
  Country: US (occurrence: US)
  Receive Date: 20130308
  Receipt Date: 20130315
  Transmission Date: 20140127
  Serious: Yes (Other)
  Sender: FDA-Public Use
  Company Number: US-PFIZER INC-2013080503

PATIENT
  Age: 84 Year
  Sex: Female
  Weight: 59.9 kg

DRUGS (4)
  1. LYRICA [Suspect]
     Indication: NEUROPATHY PERIPHERAL
     Dosage: 50 MG (TWO CAPSULES OF 25 MG), UNK
     Route: 048
  2. LYRICA [Suspect]
     Dosage: 25 MG, 1X/DAY (QHS)
     Route: 048
  3. LIPITOR [Suspect]
     Indication: BLOOD CHOLESTEROL INCREASED
     Dosage: 10 MG, 1X/DAY
     Route: 048
  4. ATACAND [Concomitant]
     Indication: HYPERTENSION
     Dosage: UNK

REACTIONS (3)
  - Lung neoplasm malignant [Not Recovered/Not Resolved]
  - Drug intolerance [Unknown]
  - Memory impairment [Unknown]
